FAERS Safety Report 15081904 (Version 6)
Quarter: 2018Q4

REPORT INFORMATION
  Report Type: Spontaneous
  Country: US (occurrence: US)
  Receive Date: 20180628
  Receipt Date: 20181012
  Transmission Date: 20190204
  Serious: No
  Sender: FDA-Public Use
  Company Number: US-PFIZER INC-2018261685

PATIENT
  Age: 57 Year
  Sex: Female

DRUGS (4)
  1. NICOTROL [Suspect]
     Active Substance: NICOTINE
     Indication: SMOKING CESSATION THERAPY
     Dosage: 10 MG, 2X/DAY (1-1 1/2 PKG PER DAY)
     Dates: start: 20180618
  2. NICOTROL [Suspect]
     Active Substance: NICOTINE
     Dosage: UNK
     Route: 055
  3. NICOTROL [Suspect]
     Active Substance: NICOTINE
     Dosage: 4 MG, UNK [10MG CARTRIDGE, 4MG DELIVERED]
  4. NICOTROL [Suspect]
     Active Substance: NICOTINE
     Dosage: UNK

REACTIONS (3)
  - Product dispensing error [Unknown]
  - Product taste abnormal [Not Recovered/Not Resolved]
  - Dysgeusia [Not Recovered/Not Resolved]
